APPROVED DRUG PRODUCT: ZIPSOR
Active Ingredient: DICLOFENAC POTASSIUM
Strength: 25MG
Dosage Form/Route: CAPSULE;ORAL
Application: N022202 | Product #001 | TE Code: AB
Applicant: ASIO HOLDINGS LLC
Approved: Jun 16, 2009 | RLD: Yes | RS: Yes | Type: RX

PATENTS:
Patent 7662858 | Expires: Feb 24, 2029
Patent 7939518 | Expires: Feb 24, 2029
Patent 8623920 | Expires: Feb 24, 2029
Patent 9561200 | Expires: Feb 24, 2029
Patent 7884095 | Expires: Feb 24, 2029
Patent 8110606 | Expires: Feb 24, 2029